FAERS Safety Report 17090944 (Version 1)
Quarter: 2019Q4

REPORT INFORMATION
  Report Type: Spontaneous
  Country: US (occurrence: US)
  Receive Date: 20191128
  Receipt Date: 20191128
  Transmission Date: 20200122
  Serious: Yes (Disabling)
  Sender: FDA-Public Use
  Company Number: None

PATIENT
  Age: 55 Year
  Sex: Female
  Weight: 103.5 kg

DRUGS (14)
  1. CALCIUM [Concomitant]
     Active Substance: CALCIUM
  2. VIT D [Concomitant]
     Active Substance: VITAMIN D NOS
  3. FOLIC ACID. [Concomitant]
     Active Substance: FOLIC ACID
  4. PROMETHAZINE [Concomitant]
     Active Substance: PROMETHAZINE HYDROCHLORIDE
  5. SIMVASTATIN. [Concomitant]
     Active Substance: SIMVASTATIN
  6. PROAIR HFA [Concomitant]
     Active Substance: ALBUTEROL SULFATE
  7. AIMOVIG [Suspect]
     Active Substance: ERENUMAB-AOOE
     Indication: MIGRAINE
     Dosage: ?          OTHER FREQUENCY:MONTHLY;OTHER ROUTE:SUBDERMAL INJECTION?
     Dates: start: 20190101, end: 20190707
  8. LEVOTHYROXIN [Concomitant]
     Active Substance: LEVOTHYROXINE
  9. COQ10 [Concomitant]
     Active Substance: UBIDECARENONE
  10. VIT B 12 [Concomitant]
     Active Substance: CYANOCOBALAMIN
  11. TUMERIC [Concomitant]
     Active Substance: HERBALS\TURMERIC
  12. INDOMETHACIN. [Concomitant]
     Active Substance: INDOMETHACIN
  13. ALIVE [Concomitant]
  14. EMGALITY [Concomitant]
     Active Substance: GALCANEZUMAB-GNLM
     Dosage: ?          OTHER FREQUENCY:MONTHYLY;OTHER ROUTE:SUBDERMAL INJECTION?
     Dates: start: 20190801, end: 20191114

REACTIONS (3)
  - Weight increased [None]
  - Arthralgia [None]
  - Oedema peripheral [None]

NARRATIVE: CASE EVENT DATE: 20190101
